FAERS Safety Report 9953294 (Version 2)
Quarter: 2014Q1

REPORT INFORMATION
  Report Type: Report from Study
  Country: US (occurrence: US)
  Receive Date: 20140304
  Receipt Date: 20140304
  Transmission Date: 20141002
  Serious: No
  Sender: FDA-Public Use
  Company Number: US-ABBVIE-13P-163-1069614-00

PATIENT
  Age: 35 Year
  Sex: Female

DRUGS (7)
  1. HUMIRA [Suspect]
     Indication: CROHN^S DISEASE
     Route: 058
     Dates: start: 20130314, end: 20130314
  2. HUMIRA [Suspect]
     Route: 058
     Dates: start: 20130328, end: 20130328
  3. VITAMIN B12 [Concomitant]
     Indication: ANAEMIA
     Route: 030
  4. ZOFRAN [Concomitant]
     Indication: NAUSEA
  5. TORADOL [Concomitant]
     Indication: CROHN^S DISEASE
  6. ZOMIG [Concomitant]
     Indication: MIGRAINE
  7. TOPAMAX [Concomitant]
     Indication: MIGRAINE PROPHYLAXIS
     Dosage: 1/2 EVERY NIGHT

REACTIONS (3)
  - Migraine [Not Recovered/Not Resolved]
  - Gastrointestinal pain [Not Recovered/Not Resolved]
  - Nausea [Not Recovered/Not Resolved]
